FAERS Safety Report 9688256 (Version 2)
Quarter: 2013Q4

REPORT INFORMATION
  Report Type: Spontaneous
  Country: US (occurrence: US)
  Receive Date: 20131114
  Receipt Date: 20131204
  Transmission Date: 20140711
  Serious: Yes (Other)
  Sender: FDA-Public Use
  Company Number: US-SA-2013SA117586

PATIENT
  Age: 74 Year
  Sex: Female
  Weight: 56.69 kg

DRUGS (13)
  1. LOVENOX [Suspect]
     Indication: HIP SURGERY
     Route: 065
     Dates: start: 20131031, end: 20131111
  2. SYNTHROID [Concomitant]
  3. COREG [Concomitant]
  4. AMIODARONE [Concomitant]
  5. LASIX [Concomitant]
  6. ALDACTONE [Concomitant]
  7. SIMVASTATIN [Concomitant]
  8. Q10 [Concomitant]
  9. ASA [Concomitant]
  10. NIACIN [Concomitant]
  11. B COMPLEX [Concomitant]
  12. VITAMIN D3 [Concomitant]
  13. PROTONIX [Concomitant]

REACTIONS (2)
  - Lung disorder [Recovered/Resolved]
  - Upper respiratory tract infection [Not Recovered/Not Resolved]
